FAERS Safety Report 8339653-4 (Version None)
Quarter: 2012Q2

REPORT INFORMATION
  Report Type: 
  Country: None (occurrence: None)
  Receive Date: 20120507
  Receipt Date: 20120503
  Transmission Date: 20120825
  Serious: Yes (Death)
  Sender: FDA-Public Use
  Company Number: PHEH2012US009469

PATIENT
  Sex: Female

DRUGS (1)
  1. RECLAST [Suspect]
     Dosage: 500 MG, ONCE IN YEAR
     Route: 042
     Dates: start: 20100101

REACTIONS (2)
  - DEATH [None]
  - INCORRECT DOSE ADMINISTERED [None]
